FAERS Safety Report 21593440 (Version 3)
Quarter: 2023Q1

REPORT INFORMATION
  Report Type: Report from Study
  Country: US (occurrence: US)
  Receive Date: 20221114
  Receipt Date: 20230210
  Transmission Date: 20230418
  Serious: Yes (Other)
  Sender: FDA-Public Use
  Company Number: US-ABBVIE-4198200

PATIENT
  Sex: Male

DRUGS (1)
  1. VENCLEXTA [Suspect]
     Active Substance: VENETOCLAX
     Indication: Chronic lymphocytic leukaemia
     Route: 048
     Dates: start: 20220121

REACTIONS (9)
  - Skin cancer [Unknown]
  - Cardiac murmur [Unknown]
  - Rash [Unknown]
  - Rash macular [Unknown]
  - Cough [Recovering/Resolving]
  - Acne [Unknown]
  - Squamous cell carcinoma of skin [Unknown]
  - Blister [Unknown]
  - Blood glucose abnormal [Unknown]
